FAERS Safety Report 16798584 (Version 4)
Quarter: 2020Q1

REPORT INFORMATION
  Report Type: Spontaneous
  Country: IE (occurrence: IE)
  Receive Date: 20190912
  Receipt Date: 20200226
  Transmission Date: 20200409
  Serious: No
  Sender: FDA-Public Use
  Company Number: IE-BEH-2019106849

PATIENT
  Age: 62 Year
  Sex: Male

DRUGS (16)
  1. RESPREEZA [Suspect]
     Active Substance: .ALPHA.1-PROTEINASE INHIBITOR HUMAN
     Dosage: DOUBLE DOSE
     Route: 065
     Dates: start: 20161220
  2. RESPREEZA [Suspect]
     Active Substance: .ALPHA.1-PROTEINASE INHIBITOR HUMAN
     Dosage: DOUBLE DOSE
     Route: 065
     Dates: start: 20180619
  3. RESPREEZA [Suspect]
     Active Substance: .ALPHA.1-PROTEINASE INHIBITOR HUMAN
     Dosage: 4800 MILLIGRAM, QW
     Route: 042
     Dates: start: 20191013
  4. RESPREEZA [Suspect]
     Active Substance: .ALPHA.1-PROTEINASE INHIBITOR HUMAN
     Dosage: 4860 MILLIGRAM
     Route: 042
     Dates: start: 2009
  5. WATER FOR INJECTION [Concomitant]
     Active Substance: WATER
     Dosage: 20 MILLILITER X 10 BN
     Route: 042
  6. RESPREEZA [Suspect]
     Active Substance: .ALPHA.1-PROTEINASE INHIBITOR HUMAN
     Indication: ALPHA-1 ANTI-TRYPSIN DEFICIENCY
     Dosage: DOUBLE DOSE
     Route: 065
     Dates: start: 20161027
  7. RESPREEZA [Suspect]
     Active Substance: .ALPHA.1-PROTEINASE INHIBITOR HUMAN
     Dosage: DOUBLE DOSE
     Route: 065
     Dates: start: 20171220
  8. RESPREEZA [Suspect]
     Active Substance: .ALPHA.1-PROTEINASE INHIBITOR HUMAN
     Dosage: UNK
     Route: 042
  9. RESPREEZA [Suspect]
     Active Substance: .ALPHA.1-PROTEINASE INHIBITOR HUMAN
     Dosage: DOUBLE DOSE
     Route: 065
     Dates: start: 20200212, end: 20200212
  10. RESPREEZA [Suspect]
     Active Substance: .ALPHA.1-PROTEINASE INHIBITOR HUMAN
     Dosage: DOUBLE DOSE OF 9600 MILLIGRAMS BN
     Route: 042
     Dates: start: 20191218, end: 20191218
  11. RESPREEZA [Suspect]
     Active Substance: .ALPHA.1-PROTEINASE INHIBITOR HUMAN
     Dosage: DOUBLE DOSE
     Route: 065
     Dates: start: 20180320
  12. RESPREEZA [Suspect]
     Active Substance: .ALPHA.1-PROTEINASE INHIBITOR HUMAN
     Dosage: DOUBLE DOSE, TOT
     Route: 042
     Dates: start: 20190925, end: 20190925
  13. RESPREEZA [Suspect]
     Active Substance: .ALPHA.1-PROTEINASE INHIBITOR HUMAN
     Dosage: DOUBLE DOSE
     Route: 065
     Dates: start: 20181219
  14. RESPREEZA [Suspect]
     Active Substance: .ALPHA.1-PROTEINASE INHIBITOR HUMAN
     Dosage: 4800 MG X 2
     Route: 042
  15. OMNIFLUSH [Concomitant]
     Dosage: 10 MILLILITER X 2 BN
     Route: 042
  16. NACL [Concomitant]
     Active Substance: SODIUM CHLORIDE
     Dosage: 50 MILLILITER BN
     Route: 042

REACTIONS (2)
  - No adverse event [Unknown]
  - Prescribed overdose [Unknown]
